FAERS Safety Report 5623470-X (Version None)
Quarter: 2008Q1

REPORT INFORMATION
  Report Type: 
  Country: None (occurrence: None)
  Receive Date: 20080212
  Receipt Date: 20080108
  Transmission Date: 20080703
  Serious: Yes (Hospitalization)
  Sender: FDA-Public Use
  Company Number: US-PFIZER INC-2008002503

PATIENT
  Age: 67 Year
  Sex: Female
  Weight: 53 kg

DRUGS (5)
  1. BLINDED SU11248 (SU011248) [Suspect]
     Indication: RENAL CELL CARCINOMA
     Dosage: FREQ:QD, 4WEEKS ON/2WEEKS REST FOR 9 CYCLES
     Route: 048
  2. ZETIA [Concomitant]
  3. DILTIAZEM [Concomitant]
  4. DIOVAN [Concomitant]
  5. PLAVIX [Concomitant]

REACTIONS (1)
  - CEREBRAL ISCHAEMIA [None]
